FAERS Safety Report 6966137-8 (Version None)
Quarter: 2010Q3

REPORT INFORMATION
  Report Type: 
  Country: None (occurrence: None)
  Receive Date: 20100903
  Receipt Date: 20100830
  Transmission Date: 20110219
  Serious: Yes (Hospitalization)
  Sender: FDA-Public Use
  Company Number: PHHO2010IT11907

PATIENT
  Sex: Male

DRUGS (3)
  1. RAD 666 [Suspect]
     Indication: PANCREATIC NEUROENDOCRINE TUMOUR
     Dosage: 10 MG, DAILY
     Route: 048
     Dates: start: 20100623, end: 20100802
  2. RAD 666 [Suspect]
     Dosage: 5 MG DAILY
     Route: 048
     Dates: start: 20100805
  3. PLACEBO COMP-PLA+ [Suspect]
     Indication: PANCREATIC NEUROENDOCRINE TUMOUR
     Dosage: DOUBLE BLIND
     Route: 048
     Dates: start: 20090401, end: 20100720

REACTIONS (1)
  - HYPERGLYCAEMIA [None]
